FAERS Safety Report 25864056 (Version 2)
Quarter: 2025Q4

REPORT INFORMATION
  Report Type: Spontaneous
  Country: IR (occurrence: IR)
  Receive Date: 20250930
  Receipt Date: 20251007
  Transmission Date: 20260117
  Serious: Yes (Death, Other)
  Sender: SANOFI AVENTIS
  Company Number: IR-SA-2025SA291740

PATIENT
  Sex: Male
  Weight: 65 kg

DRUGS (1)
  1. MYOZYME [Suspect]
     Active Substance: ALGLUCOSIDASE ALFA
     Indication: Glycogen storage disease type II
     Dosage: 20 MG/KG
     Dates: start: 201302, end: 20250917

REACTIONS (2)
  - Pulmonary oedema [Fatal]
  - Respiratory tract oedema [Fatal]
